FAERS Safety Report 9557671 (Version 1)
Quarter: 2013Q3

REPORT INFORMATION
  Report Type: Spontaneous
  Country: GB (occurrence: GB)
  Receive Date: 20130926
  Receipt Date: 20130926
  Transmission Date: 20140515
  Serious: Yes (Disabling, Other)
  Sender: FDA-Public Use
  Company Number: GB-PFIZER INC-2013273491

PATIENT
  Age: 41 Year
  Sex: Female
  Weight: 95 kg

DRUGS (2)
  1. SERTRALINE HCL [Suspect]
     Indication: POST-TRAUMATIC STRESS DISORDER
     Dosage: 100 MG, UNK
     Route: 048
  2. SERTRALINE HYDROCHLORIDE [Concomitant]
     Indication: POST-TRAUMATIC STRESS DISORDER
     Dosage: UNK

REACTIONS (9)
  - Nausea [Unknown]
  - Diarrhoea [Unknown]
  - Dizziness [Unknown]
  - Confusional state [Unknown]
  - Dehydration [Unknown]
  - Product substitution issue [Unknown]
  - Malaise [Unknown]
  - Mental disorder [Unknown]
  - Suicidal ideation [Unknown]
